FAERS Safety Report 12115447 (Version 2)
Quarter: 2016Q1

REPORT INFORMATION
  Report Type: Spontaneous
  Country: US (occurrence: US)
  Receive Date: 20160225
  Receipt Date: 20160301
  Transmission Date: 20160526
  Serious: Yes (Other)
  Sender: FDA-Public Use
  Company Number: US-MEDTRONIC-1048379

PATIENT
  Age: 30 Year
  Sex: Male

DRUGS (2)
  1. ANTIBIOTICS (UNKNOWN) [Suspect]
     Active Substance: UNSPECIFIED INGREDIENT
     Route: 048
  2. COMPOUNDED BACLOFEN (2000 MCG/ML) [Suspect]
     Active Substance: BACLOFEN
     Indication: MUSCLE SPASTICITY
     Route: 037

REACTIONS (8)
  - Drug withdrawal syndrome [Unknown]
  - Implant site extravasation [Unknown]
  - Device defective [None]
  - Sinusitis [Unknown]
  - Implant site infection [Unknown]
  - Implant site erythema [Unknown]
  - Streptococcus test positive [Unknown]
  - Implant site swelling [Unknown]

NARRATIVE: CASE EVENT DATE: 20160218
